FAERS Safety Report 22320265 (Version 2)
Quarter: 2023Q2

REPORT INFORMATION
  Report Type: Spontaneous
  Country: BR (occurrence: None)
  Receive Date: 20230515
  Receipt Date: 20230524
  Transmission Date: 20230722
  Serious: Yes (Other)
  Sender: FDA-Public Use
  Company Number: BR-Merck Healthcare KGaA-9401013

PATIENT
  Age: 70 Year
  Sex: Female

DRUGS (2)
  1. EUTHYROX [Suspect]
     Active Substance: LEVOTHYROXINE SODIUM
     Indication: Hypothyroidism
     Route: 048
     Dates: start: 20230425
  2. LEVOTHYROXINE SODIUM [Suspect]
     Active Substance: LEVOTHYROXINE SODIUM
     Indication: Hypothyroidism

REACTIONS (3)
  - Deafness [Not Recovered/Not Resolved]
  - Paraesthesia [Recovered/Resolved]
  - Product dispensing error [Unknown]

NARRATIVE: CASE EVENT DATE: 20230425
